FAERS Safety Report 6905356-3 (Version None)
Quarter: 2010Q3

REPORT INFORMATION
  Report Type: 
  Country: None (occurrence: None)
  Receive Date: 20100802
  Receipt Date: 20100720
  Transmission Date: 20110219
  Serious: Yes (Hospitalization)
  Sender: FDA-Public Use
  Company Number: WAES 1007USA02199

PATIENT
  Age: 74 Year
  Sex: Male
  Weight: 87.9978 kg

DRUGS (11)
  1. ZOCOR [Suspect]
     Indication: HYPERLIPIDAEMIA
     Dosage: 0 MG/DAILY/PO
     Route: 048
     Dates: end: 20100224
  2. TAB GEMFIBROZIL UNK [Suspect]
     Indication: LIPIDS INCREASED
     Dosage: 600 MG/BID/PO
     Route: 048
     Dates: start: 20070101, end: 20100224
  3. PRADAXA UNK [Suspect]
     Indication: CEREBROVASCULAR ACCIDENT PROPHYLAXIS
     Dosage: PO
     Route: 048
     Dates: start: 20070726
  4. FLOMAX (TAMSULOSIN HYDROCHLOIRIDE) [Concomitant]
  5. LEXAPRO [Concomitant]
  6. SINEMET [Concomitant]
  7. ASPIRIN [Concomitant]
  8. FOLIC ACID [Concomitant]
  9. GLIPIZIDE [Concomitant]
  10. OMEPRAZOLE [Concomitant]
  11. OXYBUTYNIN [Concomitant]

REACTIONS (4)
  - DISEASE PROGRESSION [None]
  - MUSCULAR WEAKNESS [None]
  - PARKINSONISM [None]
  - SPINAL COLUMN STENOSIS [None]
